FAERS Safety Report 16354198 (Version 1)
Quarter: 2019Q2

REPORT INFORMATION
  Report Type: Spontaneous
  Country: US (occurrence: US)
  Receive Date: 20190524
  Receipt Date: 20190524
  Transmission Date: 20190711
  Serious: No
  Sender: FDA-Public Use
  Company Number: US-GLAXOSMITHKLINE-US2019087866

PATIENT
  Age: 90 Year
  Sex: Female

DRUGS (2)
  1. FLONASE [Suspect]
     Active Substance: FLUTICASONE PROPIONATE
     Indication: EAR DISORDER
     Dosage: I ONLY USE 1 SQUIRT A DAY IN BOTH NOSTRILS
     Dates: start: 20190514
  2. FLONASE [Suspect]
     Active Substance: FLUTICASONE PROPIONATE
     Indication: HYPERSENSITIVITY

REACTIONS (9)
  - Off label use [Recovered/Resolved with Sequelae]
  - Pruritus [Recovered/Resolved with Sequelae]
  - Product use in unapproved indication [Unknown]
  - Dizziness [Recovered/Resolved with Sequelae]
  - Incorrect dose administered [Recovered/Resolved with Sequelae]
  - Visual impairment [Unknown]
  - Swelling [Recovered/Resolved with Sequelae]
  - Alopecia [Recovered/Resolved with Sequelae]
  - Drug effective for unapproved indication [Unknown]

NARRATIVE: CASE EVENT DATE: 20190515
